FAERS Safety Report 9186798 (Version 2)
Quarter: 2014Q1

REPORT INFORMATION
  Report Type: Spontaneous
  Country: US (occurrence: None)
  Receive Date: 20120702
  Receipt Date: 20130711
  Transmission Date: 20141002
  Serious: Yes (Hospitalization)
  Sender: FDA-Public Use
  Company Number: US-JNJFOC-20120102734

PATIENT
  Sex: Male

DRUGS (1)
  1. DACOGEN [Suspect]
     Indication: MYELODYSPLASTIC SYNDROME
     Dosage: 20 MG/M2, IN 1 IN 1 DAY, INTRAVENOUS
     Route: 042
     Dates: start: 201112

REACTIONS (2)
  - Overdose [None]
  - Pancytopenia [None]
